FAERS Safety Report 8765422 (Version 1)
Quarter: 2012Q4

REPORT INFORMATION
  Report Type: 
  Country: US (occurrence: US)
  Receive Date: 20120902
  Receipt Date: 20120902
  Transmission Date: 20130627
  Serious: Yes (Other)
  Sender: FDA-Public Use
  Company Number: US-PFIZER INC-2012215332

PATIENT
  Age: 33 Year
  Sex: Male
  Weight: 88.44 kg

DRUGS (2)
  1. CHANTIX [Suspect]
     Indication: SMOKING CESSATION THERAPY
     Dosage: UNK
  2. CHANTIX [Suspect]
     Dosage: UNK
     Dates: start: 201204, end: 2012

REACTIONS (6)
  - Schizophrenia [Unknown]
  - Abnormal behaviour [Unknown]
  - Mania [Unknown]
  - Paranoia [Unknown]
  - Depression [Unknown]
  - Psychotic behaviour [Unknown]
